FAERS Safety Report 18735595 (Version 1)
Quarter: 2021Q1

REPORT INFORMATION
  Report Type: Spontaneous
  Country: US (occurrence: US)
  Receive Date: 20210113
  Receipt Date: 20210113
  Transmission Date: 20210419
  Serious: No
  Sender: FDA-Public Use
  Company Number: US-EMD SERONO-9204900

PATIENT
  Age: 29 Year
  Sex: Female
  Weight: 56 kg

DRUGS (2)
  1. GONAL?F RFF [Suspect]
     Active Substance: FOLLITROPIN
     Indication: IN VITRO FERTILISATION
     Dosage: DATE AND DOSE UNSPECIFIED
  2. GONAL?F RFF [Suspect]
     Active Substance: FOLLITROPIN
     Dosage: POWDER AND SOLVENT FOR SOLUTION FOR INJECTION
     Route: 058
     Dates: start: 20201106, end: 20201214

REACTIONS (9)
  - Wrong technique in product usage process [Unknown]
  - Drug administered in wrong device [Unknown]
  - Emotional distress [Unknown]
  - Incorrect dose administered [Unknown]
  - Injection site injury [Recovered/Resolved]
  - Injection site haemorrhage [Recovered/Resolved]
  - Needle issue [Unknown]
  - Injection site pain [Recovered/Resolved]
  - Injection site scab [Unknown]

NARRATIVE: CASE EVENT DATE: 20201106
